FAERS Safety Report 14401951 (Version 3)
Quarter: 2023Q2

REPORT INFORMATION
  Report Type: Report from Study
  Country: CA (occurrence: CA)
  Receive Date: 20180117
  Receipt Date: 20230623
  Transmission Date: 20230722
  Serious: Yes (Death, Hospitalization)
  Sender: FDA-Public Use
  Company Number: PHHY2018CA003959

PATIENT
  Age: 62 Year
  Sex: Female

DRUGS (2)
  1. ELTROMBOPAG OLAMINE [Suspect]
     Active Substance: ELTROMBOPAG OLAMINE
     Indication: Immune thrombocytopenia
     Dosage: 25 MG, QD
     Route: 048
     Dates: start: 20120811
  2. ELTROMBOPAG OLAMINE [Suspect]
     Active Substance: ELTROMBOPAG OLAMINE
     Dosage: UNK
     Route: 048
     Dates: start: 20200823

REACTIONS (6)
  - Death [Fatal]
  - Immune system disorder [Unknown]
  - Ischaemia [Unknown]
  - Aortitis [Unknown]
  - Lupus vasculitis [Unknown]
  - Platelet disorder [Recovering/Resolving]

NARRATIVE: CASE EVENT DATE: 20221101
